FAERS Safety Report 5022462-1 (Version None)
Quarter: 2006Q2

REPORT INFORMATION
  Report Type: 
  Country: None (occurrence: None)
  Receive Date: 20060609
  Receipt Date: 20060529
  Transmission Date: 20061013
  Serious: Yes (Hospitalization)
  Sender: FDA-Public Use
  Company Number: FR-ROCHE-449904

PATIENT
  Age: 93 Year
  Sex: Female

DRUGS (14)
  1. ROCEPHIN [Suspect]
     Indication: BRONCHOPNEUMOPATHY
     Dosage: FORM REPORTED AS INJECTABLE SOLUTION.
     Route: 042
     Dates: start: 20060312, end: 20060320
  2. ZOLOFT [Suspect]
     Indication: DRUG USE FOR UNKNOWN INDICATION
     Route: 048
     Dates: end: 20060320
  3. LEVOTHYROX [Suspect]
     Indication: DRUG USE FOR UNKNOWN INDICATION
     Route: 048
     Dates: end: 20060313
  4. ISOPTIN [Suspect]
     Indication: DRUG USE FOR UNKNOWN INDICATION
     Route: 048
     Dates: end: 20060320
  5. HEMIGOXINE NATIVELLE [Suspect]
     Indication: DRUG USE FOR UNKNOWN INDICATION
     Dosage: DOSAGE REPORTED AS 0.5 DOSE DAILY.
     Route: 048
     Dates: end: 20060320
  6. MEDROL [Concomitant]
     Indication: POLYARTHRITIS
     Dosage: ON 13 MARCH 2006, TREATMENT WITH 4 MG WAS DISCONTINUED. ON AN  UNKNOWN DATE, TREATMENT WAS RESTARTE+
     Route: 048
  7. PANTOPRAZOLE SODIUM [Concomitant]
     Dates: end: 20060313
  8. DI ANTALVIC [Concomitant]
     Dates: end: 20060313
  9. XANAX [Concomitant]
     Dosage: DOSAGE REPORTED AS TWICE HALF OF A DOSE PER DAY.
     Dates: end: 20060313
  10. STILNOX [Concomitant]
  11. FOSAMAX [Concomitant]
     Dates: end: 20060313
  12. CACIT D3 [Concomitant]
     Dates: end: 20060313
  13. TIAPRIDAL [Concomitant]
  14. NORMACOL [Concomitant]
     Indication: CONSTIPATION
     Dosage: REPORTED AS NORMACOL ENEMA.
     Dates: start: 20060312, end: 20060313

REACTIONS (7)
  - ANAEMIA [None]
  - DERMATITIS [None]
  - DIVERTICULITIS [None]
  - HAEMATOMA [None]
  - HAEMORRHOIDS [None]
  - RECTAL HAEMORRHAGE [None]
  - RECTAL ULCER [None]
